FAERS Safety Report 8596387-9 (Version None)
Quarter: 2012Q3

REPORT INFORMATION
  Report Type: 
  Country: None (occurrence: None)
  Receive Date: 20120815
  Receipt Date: 20120810
  Transmission Date: 20120928
  Serious: Yes (Other)
  Sender: FDA-Public Use
  Company Number: US-PFIZER INC-2012195980

PATIENT
  Age: 33 Year
  Sex: Female
  Weight: 49.887 kg

DRUGS (4)
  1. PRISTIQ [Suspect]
     Indication: DEPRESSION
     Dosage: 100 MG, 1X/DAY
     Route: 048
     Dates: start: 20090101, end: 20120729
  2. TRI-SPRINTEC [Concomitant]
     Indication: CONTRACEPTION
     Dosage: UNK
  3. PRISTIQ [Suspect]
     Dosage: 50 MG, 1X/DAY
     Route: 048
     Dates: start: 20120729, end: 20120806
  4. MULTIVITAMIN SUPPLEMENTS [Concomitant]
     Dosage: UNK

REACTIONS (10)
  - ANXIETY [None]
  - IMPAIRED WORK ABILITY [None]
  - FEELING ABNORMAL [None]
  - ABNORMAL DREAMS [None]
  - PARAESTHESIA [None]
  - DIZZINESS [None]
  - IMPAIRED DRIVING ABILITY [None]
  - WITHDRAWAL SYNDROME [None]
  - HEADACHE [None]
  - NAUSEA [None]
